FAERS Safety Report 17116193 (Version 1)
Quarter: 2019Q4

REPORT INFORMATION
  Report Type: Spontaneous
  Country: RU (occurrence: RU)
  Receive Date: 20191205
  Receipt Date: 20191205
  Transmission Date: 20200122
  Serious: Yes (Other)
  Sender: FDA-Public Use
  Company Number: NVSC2019RU049550

PATIENT
  Sex: Female

DRUGS (5)
  1. PERTUZUMAB. [Concomitant]
     Active Substance: PERTUZUMAB
     Dosage: 420 MG ON THE 1ST DAY OF 21 DAYS CYCLE
     Route: 065
  2. DOXORUBICIN [Suspect]
     Active Substance: DOXORUBICIN
     Indication: BREAST CANCER STAGE II
     Dosage: 60 MG/M2 ON THE 1ST DAY OF 21 DAYS CYCLE
     Route: 042
  3. DOCETAXEL. [Suspect]
     Active Substance: DOCETAXEL
     Indication: BREAST CANCER
     Dosage: 75 MG ON THE 1ST DAY OF 21 DAYS CYCLE
     Route: 042
  4. CYCLOPHOSPHAMIDE. [Concomitant]
     Active Substance: CYCLOPHOSPHAMIDE
     Indication: BREAST CANCER STAGE II
     Dosage: ON THE 1ST DAY OF 21 DAYS CYCLE
     Route: 042
  5. PERTUZUMAB. [Concomitant]
     Active Substance: PERTUZUMAB
     Indication: BREAST CANCER STAGE II
     Dosage: 840 MG
     Route: 042

REACTIONS (2)
  - Metastases to central nervous system [Unknown]
  - Product use in unapproved indication [Unknown]
